FAERS Safety Report 4710099-0 (Version None)
Quarter: 2005Q3

REPORT INFORMATION
  Report Type: 
  Country: None (occurrence: None)
  Receive Date: 20050708
  Receipt Date: 20050708
  Transmission Date: 20060218
  Serious: Yes (Other)
  Sender: FDA-Public Use
  Company Number: None

PATIENT
  Sex: Male
  Weight: 2.29 kg

DRUGS (5)
  1. AUTOLOGOUS TRANSPLANT TISSUE [Suspect]
     Indication: MULTIPLE MYELOMA
     Dates: start: 20050119
  2. ALLOPURINOL [Concomitant]
  3. CYCLOSPORINE [Concomitant]
  4. FLUCONAZOLE [Concomitant]
  5. MAGNESIUM [Concomitant]

REACTIONS (6)
  - ABDOMINAL PAIN [None]
  - BACTERIAL INFECTION [None]
  - DIARRHOEA [None]
  - INFECTION [None]
  - PYREXIA [None]
  - STAPHYLOCOCCAL INFECTION [None]
